FAERS Safety Report 11137697 (Version 1)
Quarter: 2015Q2

REPORT INFORMATION
  Report Type: Spontaneous
  Country: US (occurrence: US)
  Receive Date: 20150526
  Receipt Date: 20150526
  Transmission Date: 20150821
  Serious: Yes (Other)
  Sender: FDA-Public Use
  Company Number: US-GLAXOSMITHKLINE-US2015070680

PATIENT
  Sex: Female

DRUGS (11)
  1. ACEBUTOLOL [Concomitant]
     Active Substance: ACEBUTOLOL
  2. SUMATRIPTAN SUCCINATE. [Suspect]
     Active Substance: SUMATRIPTAN SUCCINATE
     Indication: MIGRAINE
     Dosage: 50 MG, UNK
     Route: 048
     Dates: start: 2011
  3. VICODIN [Concomitant]
     Active Substance: ACETAMINOPHEN\HYDROCODONE BITARTRATE
  4. ZETIA [Concomitant]
     Active Substance: EZETIMIBE
  5. PREMARIN [Concomitant]
     Active Substance: ESTROGENS, CONJUGATED
  6. ZANTAC [Concomitant]
     Active Substance: RANITIDINE HYDROCHLORIDE
  7. FISH OIL [Concomitant]
     Active Substance: FISH OIL
  8. IMITREX [Suspect]
     Active Substance: SUMATRIPTAN\SUMATRIPTAN SUCCINATE
     Indication: MIGRAINE
     Dosage: 50 MG, UNK
     Dates: start: 1989
  9. CRESTOR [Concomitant]
     Active Substance: ROSUVASTATIN CALCIUM
  10. LOSARTAN [Concomitant]
     Active Substance: LOSARTAN
  11. ASPIRIN. [Concomitant]
     Active Substance: ASPIRIN

REACTIONS (9)
  - Vertigo [Unknown]
  - Disorganised speech [Unknown]
  - Photophobia [Unknown]
  - Vomiting [Unknown]
  - Macular degeneration [Unknown]
  - Migraine [Unknown]
  - Nausea [Unknown]
  - Aphasia [Unknown]
  - Drug ineffective [Unknown]
